FAERS Safety Report 4648625-2 (Version None)
Quarter: 2005Q2

REPORT INFORMATION
  Report Type: 
  Country: None (occurrence: None)
  Receive Date: 20050429
  Receipt Date: 20040326
  Transmission Date: 20051028
  Serious: No
  Sender: FDA-Public Use
  Company Number: US-GLAXOSMITHKLINE-A0504784A

PATIENT
  Age: 41 Year
  Sex: Female

DRUGS (2)
  1. AMERGE [Suspect]
     Indication: MIGRAINE
     Dosage: 2.5MG VARIABLE DOSE
     Route: 048
     Dates: start: 20031001
  2. SYNTHROID [Concomitant]

REACTIONS (2)
  - ACNE [None]
  - DRY SKIN [None]
